FAERS Safety Report 8932389 (Version 2)
Quarter: 2013Q2

REPORT INFORMATION
  Report Type: Spontaneous
  Country: US (occurrence: US)
  Receive Date: 20121128
  Receipt Date: 20130419
  Transmission Date: 20140414
  Serious: No
  Sender: FDA-Public Use
  Company Number: US-PFIZER INC-2012298083

PATIENT
  Age: 51 Year
  Sex: Female
  Weight: 72 kg

DRUGS (10)
  1. LYRICA [Suspect]
     Dosage: 75 MG, 2X/DAY
     Route: 048
  2. TRAZODONE [Concomitant]
     Dosage: 50 MG, HS
     Route: 048
  3. FENTANYL [Concomitant]
     Dosage: 25 UG, PER HOUR (Q72 HR)
     Route: 061
  4. VICODIN [Concomitant]
     Dosage: 5 MG-500MG, BID
     Route: 048
  5. ATIVAN [Concomitant]
     Dosage: UNK
  6. ESTRIOL [Concomitant]
     Dosage: UNK
  7. LEXAPRO [Concomitant]
     Dosage: UNK, DAILY
     Route: 048
  8. ARMOUR THYROID [Concomitant]
     Dosage: UNK, DAILY
     Route: 048
  9. LEVOTHYROXINE [Concomitant]
     Dosage: UNK, DAILY
  10. CYMBALTA [Concomitant]
     Dosage: 90 MG, UNK

REACTIONS (1)
  - Malaise [Unknown]
